FAERS Safety Report 8558144-9 (Version None)
Quarter: 2012Q3

REPORT INFORMATION
  Report Type: 
  Country: None (occurrence: None)
  Receive Date: 20120801
  Receipt Date: 20120718
  Transmission Date: 20120928
  Serious: No
  Sender: FDA-Public Use
  Company Number: US-ASTRAZENECA-2011SE31393

PATIENT
  Age: 64 Year
  Sex: Male

DRUGS (4)
  1. TOPROL-XL [Suspect]
     Dosage: 1 TABLET, DAILY
     Route: 048
  2. TOPROL-XL [Suspect]
     Route: 048
  3. TOPROL-XL [Suspect]
     Dosage: 2 TABLETS, DAILY
     Route: 048
  4. TOPROL-XL [Suspect]
     Route: 048

REACTIONS (4)
  - METAMORPHOPSIA [None]
  - DRUG INEFFECTIVE [None]
  - ARTHRITIS [None]
  - VITREOUS DETACHMENT [None]
